FAERS Safety Report 13926397 (Version 4)
Quarter: 2021Q1

REPORT INFORMATION
  Report Type: Report from Study
  Country: US (occurrence: US)
  Receive Date: 20170831
  Receipt Date: 20210315
  Transmission Date: 20210419
  Serious: Yes (Hospitalization)
  Sender: FDA-Public Use
  Company Number: US-AMGEN-USACT2017131720

PATIENT
  Age: 67 Year
  Sex: Female
  Weight: 62.27 kg

DRUGS (14)
  1. ATORVASTATIN [Concomitant]
     Active Substance: ATORVASTATIN
     Indication: DYSLIPIDAEMIA
     Dosage: 40 MILLIGRAM
     Dates: start: 20160926
  2. SUPER B COMPLEX [VITAMIN B COMPLEX] [Concomitant]
     Dosage: 1 UNK
     Dates: start: 20110301
  3. VITAMIN D3 [Concomitant]
     Active Substance: CHOLECALCIFEROL
     Dosage: 1000 MILLIGRAM
     Dates: start: 20120104
  4. ZEGERID [OMEPRAZOLE] [Concomitant]
     Active Substance: OMEPRAZOLE
     Dosage: 20 MILLIGRAM
     Dates: start: 20130202
  5. AMILORIDE [Concomitant]
     Active Substance: AMILORIDE
     Dosage: 5 MILLIGRAM
     Dates: start: 20130801
  6. COENZYME Q10 [Concomitant]
     Active Substance: DIETARY SUPPLEMENT\UBIDECARENONE
     Dosage: 100 MILLIGRAM
     Dates: start: 20120104
  7. EVOLOCUMAB [Suspect]
     Active Substance: EVOLOCUMAB
     Indication: DYSLIPIDAEMIA
     Dosage: UNK
     Route: 058
     Dates: start: 20160926
  8. POTASSIUM [Concomitant]
     Active Substance: POTASSIUM
     Dosage: 1 UNK
     Dates: start: 20120104
  9. BIOTIN [Concomitant]
     Active Substance: BIOTIN
     Dosage: 2500 MILLIGRAM
     Dates: start: 20130604
  10. RIVAROXABAN [Concomitant]
     Active Substance: RIVAROXABAN
     Dosage: UNK
  11. APIXABAN [Concomitant]
     Active Substance: APIXABAN
     Dosage: UNK
  12. ZINC. [Concomitant]
     Active Substance: ZINC
     Dosage: 50 MILLIGRAM
     Dates: start: 20120104
  13. ACIDOPHILUS [Concomitant]
     Active Substance: LACTOBACILLUS ACIDOPHILUS
     Dosage: 1 UNK
     Dates: start: 20130604
  14. LOSARTAN. [Concomitant]
     Active Substance: LOSARTAN
     Dosage: 100 MILLIGRAM
     Dates: start: 20090210

REACTIONS (1)
  - Transient ischaemic attack [Recovered/Resolved]

NARRATIVE: CASE EVENT DATE: 20170822
